FAERS Safety Report 8121844-9 (Version None)
Quarter: 2012Q1

REPORT INFORMATION
  Report Type: 
  Country: None (occurrence: None)
  Receive Date: 20120208
  Receipt Date: 20120201
  Transmission Date: 20120608
  Serious: Yes (Hospitalization, Disabling, Other)
  Sender: FDA-Public Use
  Company Number: US-PFIZER INC-2011228801

PATIENT
  Age: 59 Year
  Sex: Male

DRUGS (3)
  1. VIAGRA [Suspect]
     Indication: ERECTILE DYSFUNCTION
     Dosage: 50 MG, SINGLE
     Route: 065
  2. VIAGRA [Interacting]
     Dosage: 50-100 MG AS NEEDED
  3. HYDROCHLOROTHIAZIDE [Interacting]
     Indication: HYPERTENSION
     Dosage: UNK

REACTIONS (4)
  - PARAPLEGIA [None]
  - DRUG INTERACTION [None]
  - HYPOTENSION [None]
  - SPINAL CORD INFARCTION [None]
